FAERS Safety Report 8020898-8 (Version None)
Quarter: 2011Q4

REPORT INFORMATION
  Report Type: 
  Country: None (occurrence: None)
  Receive Date: 20111229
  Receipt Date: 20111229
  Transmission Date: 20120403
  Serious: Yes (Hospitalization)
  Sender: FDA-Public Use
  Company Number: None

PATIENT
  Age: 74 Year
  Sex: Male
  Weight: 107.4 kg

DRUGS (1)
  1. ALLOPURINOL [Suspect]
     Dosage: MG PO
     Route: 048
     Dates: start: 20070805, end: 20111004

REACTIONS (5)
  - PRURITUS [None]
  - RASH [None]
  - WOUND [None]
  - URTICARIA [None]
  - ERYTHEMA [None]
